FAERS Safety Report 7213499-2 (Version None)
Quarter: 2011Q1

REPORT INFORMATION
  Report Type: 
  Country: None (occurrence: None)
  Receive Date: 20110106
  Receipt Date: 20101231
  Transmission Date: 20110831
  Serious: Yes (Death)
  Sender: FDA-Public Use
  Company Number: US-PFIZER INC-2011001436

PATIENT
  Sex: Male

DRUGS (3)
  1. PAROXETINE HCL [Suspect]
  2. ACETAMINOPHEN AND OXYCODONE HCL [Suspect]
  3. ALPRAZOLAM [Suspect]

REACTIONS (4)
  - RESPIRATORY ARREST [None]
  - DEATH [None]
  - CARDIAC ARREST [None]
  - INTENTIONAL DRUG MISUSE [None]
